FAERS Safety Report 17307967 (Version 3)
Quarter: 2020Q1

REPORT INFORMATION
  Report Type: Report from Study
  Country: JP (occurrence: JP)
  Receive Date: 20200123
  Receipt Date: 20200317
  Transmission Date: 20200409
  Serious: Yes (Hospitalization)
  Sender: FDA-Public Use
  Company Number: JP-ASTELLAS-2020JP001050

PATIENT
  Age: 56 Year
  Sex: Male

DRUGS (12)
  1. LUSEFI [Concomitant]
     Active Substance: LUSEOGLIFLOZIN
     Indication: DIABETES MELLITUS
     Route: 048
     Dates: start: 20180608
  2. CLOPIDOGREL [Concomitant]
     Active Substance: CLOPIDOGREL BISULFATE
     Indication: ANGINA PECTORIS
     Route: 048
     Dates: start: 20190330
  3. EQUMET [Concomitant]
     Active Substance: METFORMIN HYDROCHLORIDE\VILDAGLIPTIN
     Indication: DIABETES MELLITUS
     Route: 048
     Dates: start: 20190809
  4. ACICLOVIR [Concomitant]
     Active Substance: ACYCLOVIR
     Indication: INFECTION PROPHYLAXIS
     Route: 048
     Dates: start: 20180928
  5. CARBOCISTEINE [Concomitant]
     Active Substance: CARBOCYSTEINE
     Indication: OROPHARYNGEAL DISCOMFORT
     Route: 048
     Dates: start: 20190527, end: 20200116
  6. MOSAPRIDE CITRATE [Concomitant]
     Active Substance: MOSAPRIDE CITRATE
     Indication: NAUSEA
     Route: 048
     Dates: start: 20191008, end: 20200116
  7. ASP2215 [Suspect]
     Active Substance: GILTERITINIB
     Indication: ACUTE MYELOID LEUKAEMIA
     Route: 048
     Dates: start: 20181108, end: 20200114
  8. AMLODIPINE OD TYK [Concomitant]
     Indication: HYPERTENSION
     Route: 048
     Dates: start: 2003
  9. COLIOPAN [Concomitant]
     Active Substance: BUTROPIUM BROMIDE
     Indication: FAECES SOFT
     Route: 048
     Dates: start: 20190819, end: 20200116
  10. EQUA [Concomitant]
     Active Substance: VILDAGLIPTIN
     Indication: DIABETES MELLITUS
     Route: 048
     Dates: start: 2003, end: 20200116
  11. ROSUVASTATIN. [Concomitant]
     Active Substance: ROSUVASTATIN
     Indication: DYSLIPIDAEMIA
     Route: 048
     Dates: start: 20180608
  12. LANSOPRAZOLE. [Concomitant]
     Active Substance: LANSOPRAZOLE
     Indication: PROPHYLAXIS
     Route: 048
     Dates: start: 2018

REACTIONS (1)
  - Pneumonia [Recovered/Resolved]

NARRATIVE: CASE EVENT DATE: 20200117
